FAERS Safety Report 6979534-1 (Version None)
Quarter: 2010Q3

REPORT INFORMATION
  Report Type: 
  Country: None (occurrence: None)
  Receive Date: 20100913
  Receipt Date: 20100830
  Transmission Date: 20110219
  Serious: Yes (Other)
  Sender: FDA-Public Use
  Company Number: PHHY2010SI57437

PATIENT
  Sex: Female

DRUGS (1)
  1. TASIGNA [Suspect]
     Indication: CHRONIC MYELOID LEUKAEMIA
     Dosage: 800MG/DAY
     Dates: start: 20100708, end: 20100722

REACTIONS (5)
  - DIARRHOEA [None]
  - DRY MOUTH [None]
  - MICTURITION FREQUENCY DECREASED [None]
  - SWELLING [None]
  - WEIGHT INCREASED [None]
